FAERS Safety Report 18626520 (Version 3)
Quarter: 2020Q4

REPORT INFORMATION
  Report Type: Spontaneous
  Country: JP (occurrence: JP)
  Receive Date: 20201216
  Receipt Date: 20201231
  Transmission Date: 20210114
  Serious: Yes (Other)
  Sender: FDA-Public Use
  Company Number: JP-TAKEDA-2020TJP027591

PATIENT
  Age: 51 Year
  Sex: Male

DRUGS (1)
  1. ROZEREM [Suspect]
     Active Substance: RAMELTEON
     Indication: INITIAL INSOMNIA
     Dosage: 8 MILLIGRAM
     Route: 048

REACTIONS (1)
  - Erectile dysfunction [Unknown]
